FAERS Safety Report 8016717-6 (Version None)
Quarter: 2012Q1

REPORT INFORMATION
  Report Type: 
  Country: None (occurrence: None)
  Receive Date: 20120102
  Receipt Date: 20111223
  Transmission Date: 20120608
  Serious: Yes (Other)
  Sender: FDA-Public Use
  Company Number: US-BIOGENIDEC-2011BI029834

PATIENT
  Age: 64 Year
  Sex: Female

DRUGS (2)
  1. AVONEX [Suspect]
     Indication: MULTIPLE SCLEROSIS
     Route: 030
     Dates: start: 20110302
  2. IBUPROFEN [Concomitant]
     Indication: PROPHYLAXIS
     Dates: start: 20110301

REACTIONS (6)
  - VENTRICULAR EXTRASYSTOLES [None]
  - BLOOD GLUCOSE INCREASED [None]
  - ABASIA [None]
  - HEART RATE INCREASED [None]
  - CONVULSION [None]
  - STRESS [None]
